FAERS Safety Report 13653016 (Version 1)
Quarter: 2017Q2

REPORT INFORMATION
  Report Type: Spontaneous
  Country: US (occurrence: US)
  Receive Date: 20170614
  Receipt Date: 20170614
  Transmission Date: 20170830
  Serious: Yes (Other)
  Sender: FDA-Public Use
  Company Number: US-ROCHE-1091430

PATIENT
  Sex: Female

DRUGS (2)
  1. XELODA [Suspect]
     Active Substance: CAPECITABINE
     Indication: BREAST CANCER METASTATIC
     Route: 065
     Dates: start: 20120616
  2. XELODA [Suspect]
     Active Substance: CAPECITABINE
     Route: 065

REACTIONS (5)
  - Cerebellar ataxia [Unknown]
  - Fatigue [Unknown]
  - Restless legs syndrome [Unknown]
  - Dysarthria [Unknown]
  - Coordination abnormal [Unknown]
